FAERS Safety Report 9401850 (Version 1)
Quarter: 2013Q3

REPORT INFORMATION
  Report Type: Spontaneous
  Country: AU (occurrence: AU)
  Receive Date: 20130716
  Receipt Date: 20130716
  Transmission Date: 20140515
  Serious: Yes (Death, Other)
  Sender: FDA-Public Use
  Company Number: AU-JNJFOC-20130212509

PATIENT
  Age: 2 Year
  Sex: Male
  Weight: 12.2 kg

DRUGS (4)
  1. TRAMAL [Suspect]
     Indication: PRODUCT USED FOR UNKNOWN INDICATION
     Route: 065
     Dates: start: 20120125, end: 20120125
  2. TRAMADOL HYDROCHLORIDE [Suspect]
     Indication: PRODUCT USED FOR UNKNOWN INDICATION
     Route: 042
  3. TRAMADAL HYDROCHLORIDE AND ACETAMINOPHEN [Suspect]
     Indication: PRODUCT USED FOR UNKNOWN INDICATION
     Route: 048
  4. PARACETAMOL [Concomitant]
     Indication: PRODUCT USED FOR UNKNOWN INDICATION
     Route: 065

REACTIONS (8)
  - Multi-organ failure [Fatal]
  - Toxicity to various agents [Fatal]
  - Drug administered to patient of inappropriate age [Unknown]
  - Overdose [Unknown]
  - Hypoxia [None]
  - Brain injury [None]
  - Unresponsive to stimuli [None]
  - Fluid overload [None]
